FAERS Safety Report 10387509 (Version 1)
Quarter: 2014Q3

REPORT INFORMATION
  Report Type: Spontaneous
  Country: US (occurrence: US)
  Receive Date: 20140815
  Receipt Date: 20140815
  Transmission Date: 20150326
  Serious: No
  Sender: FDA-Public Use
  Company Number: US-TARO-2013P1020585

PATIENT
  Sex: Female
  Weight: 81.19 kg

DRUGS (1)
  1. ATHLETES FOOT NOS [Suspect]
     Active Substance: MICONAZOLE NITRATE OR TERBINAFINE HYDROCHLORIDE OR TOLNAFTATE
     Dosage: TID
     Route: 061
     Dates: start: 20131014, end: 20131022

REACTIONS (2)
  - Drug ineffective [Unknown]
  - Application site erythema [Unknown]
